FAERS Safety Report 19659863 (Version 2)
Quarter: 2021Q3

REPORT INFORMATION
  Report Type: Spontaneous
  Country: ES (occurrence: ES)
  Receive Date: 20210805
  Receipt Date: 20210907
  Transmission Date: 20211014
  Serious: Yes (Other)
  Sender: FDA-Public Use
  Company Number: ES-AUROBINDO-AUR-APL-2021-032926

PATIENT
  Age: 48 Year
  Sex: Female
  Weight: 67.8 kg

DRUGS (7)
  1. INSULIN GLARGINE [Suspect]
     Active Substance: INSULIN GLARGINE
     Dosage: 42 INTERNATIONAL UNIT, ONCE A DAY
     Route: 058
  2. ALPRAZOLAM. [Suspect]
     Active Substance: ALPRAZOLAM
     Indication: ANXIETY
     Dosage: 15 MILLIGRAM, ONCE A DAY
     Route: 048
  3. INSULIN GLARGINE [Suspect]
     Active Substance: INSULIN GLARGINE
     Dosage: 46 INTERNATIONAL UNIT, ONCE A DAY
     Route: 058
  4. ALPRAZOLAM. [Suspect]
     Active Substance: ALPRAZOLAM
     Indication: DEPRESSION
     Dosage: 30 MILLIGRAM, ONCE A DAY
     Route: 048
  5. INSULIN GLARGINE [Suspect]
     Active Substance: INSULIN GLARGINE
     Dosage: 26 INTERNATIONAL UNIT
     Route: 058
     Dates: start: 2018
  6. INSULIN GLARGINE [Suspect]
     Active Substance: INSULIN GLARGINE
     Indication: TYPE 2 DIABETES MELLITUS
     Dosage: 32 INTERNATIONAL UNIT, ONCE A DAY
     Route: 058
  7. INSULIN GLARGINE [Suspect]
     Active Substance: INSULIN GLARGINE
     Dosage: 20 INTERNATIONAL UNIT
     Route: 058

REACTIONS (25)
  - Headache [Recovered/Resolved]
  - Chest discomfort [Recovering/Resolving]
  - Blood glucose fluctuation [Not Recovered/Not Resolved]
  - Neck pain [Unknown]
  - Multiple use of single-use product [Unknown]
  - Asthenia [Recovered/Resolved]
  - Hyperglycaemia [Recovered/Resolved]
  - Rash macular [Recovered/Resolved]
  - Intentional product use issue [Unknown]
  - Dizziness [Recovered/Resolved]
  - Cerebrovascular accident [Recovered/Resolved with Sequelae]
  - Intracardiac thrombus [Recovered/Resolved]
  - Blood glucose increased [Recovered/Resolved]
  - Dry mouth [Recovered/Resolved]
  - Speech disorder [Recovering/Resolving]
  - Anxiety [Recovered/Resolved]
  - Nervousness [Recovering/Resolving]
  - Blood glucose increased [Not Recovered/Not Resolved]
  - Psychiatric symptom [Unknown]
  - Pain [Unknown]
  - Product storage error [Unknown]
  - Self-injurious ideation [Unknown]
  - Visual acuity reduced [Unknown]
  - Hemiparesis [Recovering/Resolving]
  - Hypoglycaemia [Recovered/Resolved]

NARRATIVE: CASE EVENT DATE: 20210815
